FAERS Safety Report 15660174 (Version 1)
Quarter: 2018Q4

REPORT INFORMATION
  Report Type: Report from Study
  Country: CO (occurrence: CO)
  Receive Date: 20181127
  Receipt Date: 20181127
  Transmission Date: 20190205
  Serious: Yes (Hospitalization)
  Sender: FDA-Public Use
  Company Number: CO-IPSEN BIOPHARMACEUTICALS, INC.-2018-17901

PATIENT
  Age: 37 Year
  Sex: Female

DRUGS (5)
  1. LANREOTIDE 120 MG [Suspect]
     Active Substance: LANREOTIDE
     Indication: ACROMEGALY
     Route: 058
     Dates: start: 20170424, end: 20181002
  2. GLIMEPIRIDE. [Concomitant]
     Active Substance: GLIMEPIRIDE
     Indication: TYPE 2 DIABETES MELLITUS
  3. METFORMIN [Concomitant]
     Active Substance: METFORMIN HYDROCHLORIDE
     Indication: TYPE 2 DIABETES MELLITUS
  4. ATORVASTATIN [Concomitant]
     Active Substance: ATORVASTATIN
  5. JANUMET [Concomitant]
     Active Substance: METFORMIN HYDROCHLORIDE\SITAGLIPTIN PHOSPHATE
     Indication: TYPE 2 DIABETES MELLITUS

REACTIONS (2)
  - Cholelithiasis [Recovering/Resolving]
  - Inflammatory pain [Recovering/Resolving]

NARRATIVE: CASE EVENT DATE: 20181015
